FAERS Safety Report 16187774 (Version 5)
Quarter: 2019Q2

REPORT INFORMATION
  Report Type: Report from Study
  Country: None (occurrence: CA)
  Receive Date: 20190412
  Receipt Date: 20190520
  Transmission Date: 20190711
  Serious: Yes (Other)
  Sender: FDA-Public Use
  Company Number: CA-ABBVIE-19S-028-2740301-00

PATIENT
  Age: 50 Year
  Sex: Female
  Weight: 47.5 kg

DRUGS (6)
  1. DUODOPA [Suspect]
     Active Substance: CARBIDOPA\LEVODOPA
     Indication: PARKINSON^S DISEASE
     Route: 050
     Dates: start: 201610
  2. DUODOPA [Suspect]
     Active Substance: CARBIDOPA\LEVODOPA
     Route: 050
     Dates: start: 20160903
  3. CLONAZEPAM. [Concomitant]
     Active Substance: CLONAZEPAM
     Indication: SLEEP DISORDER
     Route: 048
  4. EFFEXOR [Concomitant]
     Active Substance: VENLAFAXINE HYDROCHLORIDE
     Indication: ANXIETY
     Route: 048
  5. X-A-DAY [Concomitant]
     Indication: CONSTIPATION
     Route: 048
  6. AZILECT [Concomitant]
     Active Substance: RASAGILINE MESYLATE
     Indication: PARKINSON^S DISEASE
     Route: 048

REACTIONS (7)
  - Intussusception [Unknown]
  - Constipation [Unknown]
  - Abdominal pain [Recovered/Resolved]
  - Therapeutic product effect decreased [Unknown]
  - Medical device repositioning [Recovering/Resolving]
  - Abdominal discomfort [Unknown]
  - Device dislocation [Unknown]

NARRATIVE: CASE EVENT DATE: 20180409
